FAERS Safety Report 10787845 (Version 3)
Quarter: 2015Q1

REPORT INFORMATION
  Report Type: Spontaneous
  Country: US (occurrence: None)
  Receive Date: 20150210
  Receipt Date: 20150303
  Transmission Date: 20150721
  Serious: Yes (Hospitalization)
  Sender: FDA-Public Use
  Company Number: US-001664

PATIENT
  Age: 68 Year
  Sex: Female

DRUGS (3)
  1. SOLUTIONS FOR PARENTERAL NUTRITION [Concomitant]
     Active Substance: AMINO ACIDS\DEXTROSE\ELECTROLYTES NOS
  2. GATTEX [Suspect]
     Active Substance: TEDUGLUTIDE\WATER
     Indication: SHORT-BOWEL SYNDROME
     Dosage: DF SUBCUTANEOUS
     Route: 058
  3. CEFRIAXONE [Concomitant]

REACTIONS (2)
  - Circumstance or information capable of leading to medication error [None]
  - Device related infection [None]

NARRATIVE: CASE EVENT DATE: 201501
